FAERS Safety Report 19853680 (Version 2)
Quarter: 2021Q4

REPORT INFORMATION
  Report Type: Report from Study
  Country: US (occurrence: US)
  Receive Date: 20210919
  Receipt Date: 20211012
  Transmission Date: 20220303
  Serious: No
  Sender: FDA-Public Use
  Company Number: US-ACADIA PHARMACEUTICALS INC.-ACA-2021-PIM-003122

PATIENT
  Sex: Male
  Weight: 86 kg

DRUGS (15)
  1. NUPLAZID [Suspect]
     Active Substance: PIMAVANSERIN TARTRATE
     Indication: Parkinson^s disease psychosis
     Dosage: 34 MILLIGRAM, QD
     Route: 048
     Dates: end: 20210809
  2. NUPLAZID [Suspect]
     Active Substance: PIMAVANSERIN TARTRATE
     Indication: Hallucination
  3. NUPLAZID [Suspect]
     Active Substance: PIMAVANSERIN TARTRATE
     Indication: Delusion
  4. RYTARY [Concomitant]
     Active Substance: CARBIDOPA\LEVODOPA
     Dosage: 3 CAPSULES, TID
  5. COREG [Concomitant]
     Active Substance: CARVEDILOL
     Dosage: 25 MILLIGRAM, BID
  6. EXELON [Concomitant]
     Active Substance: RIVASTIGMINE TARTRATE
     Dosage: 9.5 MG QD
  7. FLOMAX [Concomitant]
     Active Substance: TAMSULOSIN HYDROCHLORIDE
     Dosage: 0.4 MG QHS
  8. HYDROXYZINE [Concomitant]
     Active Substance: HYDROXYZINE HYDROCHLORIDE
     Dosage: 25 MG Q12H PRN ANXIETY
  9. NEUPRO [Concomitant]
     Active Substance: ROTIGOTINE
     Dosage: 4 MILLIGRAM, QD
  10. PANTOPRAZOLE [Concomitant]
     Active Substance: PANTOPRAZOLE
     Dosage: 40 MILLIGRAM, QD
  11. PROSCAR [Concomitant]
     Active Substance: FINASTERIDE
     Dosage: 5 MILLIGRAM QAM
  12. REMERON [Concomitant]
     Active Substance: MIRTAZAPINE
     Indication: Depression
     Dosage: 15 MILLIGRAM QHS
  13. SEROQUEL [Concomitant]
     Active Substance: QUETIAPINE FUMARATE
     Dosage: 12.5 MG QAM
  14. SEROQUEL [Concomitant]
     Active Substance: QUETIAPINE FUMARATE
     Dosage: 25 MG QHS
  15. SEROQUEL [Concomitant]
     Active Substance: QUETIAPINE FUMARATE
     Dosage: 25 MG BID

REACTIONS (6)
  - Product dose omission issue [Not Recovered/Not Resolved]
  - Delusion [Not Recovered/Not Resolved]
  - Therapeutic response unexpected [Unknown]
  - Insomnia [Not Recovered/Not Resolved]
  - Aggression [Not Recovered/Not Resolved]
  - Hallucination [Unknown]
